FAERS Safety Report 9422902 (Version 1)
Quarter: 2013Q3

REPORT INFORMATION
  Report Type: Report from Study
  Country: CA (occurrence: CA)
  Receive Date: 20130726
  Receipt Date: 20130726
  Transmission Date: 20140515
  Serious: Yes (Hospitalization)
  Sender: FDA-Public Use
  Company Number: CA-JNJFOC-20130712797

PATIENT
  Age: 53 Year
  Sex: Female
  Weight: 62.2 kg

DRUGS (8)
  1. REMICADE [Suspect]
     Indication: CROHN^S DISEASE
     Route: 042
     Dates: start: 20110927
  2. VITAMIN B 12 [Concomitant]
     Route: 065
  3. PANTOLOC [Concomitant]
     Route: 065
  4. AZATHIOPRINE [Concomitant]
     Route: 065
  5. OXYCONTIN [Concomitant]
     Route: 065
  6. VITAMIN D [Concomitant]
     Route: 065
  7. AXERT [Concomitant]
     Route: 065
  8. METOCLOPRAMIDE [Concomitant]
     Route: 065

REACTIONS (2)
  - Volvulus [Unknown]
  - Rash pruritic [Recovered/Resolved]
